FAERS Safety Report 21909579 (Version 1)
Quarter: 2023Q1

REPORT INFORMATION
  Report Type: Spontaneous
  Country: JP (occurrence: JP)
  Receive Date: 20230125
  Receipt Date: 20230125
  Transmission Date: 20230417
  Serious: Yes (Hospitalization, Other)
  Sender: FDA-Public Use
  Company Number: JP-FRESENIUS Kabi-FK202113696

PATIENT
  Age: 28 Year
  Sex: Female
  Weight: 55 kg

DRUGS (2)
  1. PROPOFOL [Suspect]
     Active Substance: PROPOFOL
     Indication: Off label use
     Dosage: ADMINISTERED AT 2 ML TO 5 ML (20 MG TO 50 MG) EVERY FEW MINUTES, RESULTING IN A TOTAL OF 200 ML (2,0
     Route: 065
  2. MIDAZOLAM [Concomitant]
     Active Substance: MIDAZOLAM
     Indication: Pain

REACTIONS (6)
  - Off label use [Unknown]
  - Overdose [Recovered/Resolved]
  - Propofol infusion syndrome [Unknown]
  - Acute kidney injury [Unknown]
  - Rhabdomyolysis [Unknown]
  - Metabolic acidosis [Unknown]
